FAERS Safety Report 9067324 (Version 7)
Quarter: 2015Q1

REPORT INFORMATION
  Report Type: Spontaneous
  Country: US (occurrence: US)
  Receive Date: 20130214
  Receipt Date: 20150313
  Transmission Date: 20150721
  Serious: Yes (Hospitalization, Other)
  Sender: FDA-Public Use
  Company Number: US-PFIZER INC-2013024188

PATIENT
  Age: 72 Year
  Sex: Female

DRUGS (12)
  1. TRAZODONE HYDROCHLORIDE. [Concomitant]
     Active Substance: TRAZODONE HYDROCHLORIDE
     Dosage: 25 MG AT BEDTIME
  2. LYRICA [Suspect]
     Active Substance: PREGABALIN
     Indication: NEUROPATHY PERIPHERAL
     Dosage: 150 MG, DAILY
     Route: 048
  3. CLONIDINE HCL [Concomitant]
     Active Substance: CLONIDINE HYDROCHLORIDE
     Dosage: 0.1 MG, UNK
  4. OMEGA 3 [Concomitant]
     Active Substance: OMEGA-3 FATTY ACIDS
     Dosage: 1000 MG, 2X/DAY
  5. CELEXA [Concomitant]
     Active Substance: CITALOPRAM HYDROBROMIDE
     Dosage: 20 MG, 1X/DAY
     Dates: end: 201502
  6. LYRICA [Suspect]
     Active Substance: PREGABALIN
     Dosage: 100 MG, 3X/DAY
     Route: 048
     Dates: start: 2005, end: 201412
  7. MELATONIN [Concomitant]
     Active Substance: MELATONIN
     Dosage: 1-2 IN BEDTIME
     Dates: end: 20140910
  8. PROBIOTICS [Concomitant]
     Active Substance: PROBIOTICS NOS
  9. LYRICA [Suspect]
     Active Substance: PREGABALIN
     Indication: EPILEPSY
     Dosage: 200 MG, 1X/DAY IN THE EVENING
     Route: 048
     Dates: start: 20070917
  10. ZYRTEC [Concomitant]
     Active Substance: CETIRIZINE HYDROCHLORIDE
     Dosage: 8 MONTH 2014
     Dates: end: 2014
  11. ENALAPRIL MALEATE+HYDROCHLOROTHIAZIDE [Concomitant]
     Dosage: ENALAPRIL MALEATE 10MG+ HYDROCHLOROTHIAZIDE 25 MG
  12. MIRALAX [Concomitant]
     Active Substance: POLYETHYLENE GLYCOL 3350
     Dosage: UNK, AS NEEDED

REACTIONS (6)
  - Dyspnoea [Unknown]
  - Tooth disorder [Unknown]
  - Pain [Unknown]
  - Myocardial infarction [Not Recovered/Not Resolved]
  - Nausea [Recovered/Resolved]
  - Arthropathy [Unknown]

NARRATIVE: CASE EVENT DATE: 20130102
